FAERS Safety Report 8123120-7 (Version None)
Quarter: 2012Q1

REPORT INFORMATION
  Report Type: 
  Country: None (occurrence: None)
  Receive Date: 20120208
  Receipt Date: 20120202
  Transmission Date: 20120608
  Serious: Yes (Other)
  Sender: FDA-Public Use
  Company Number: US-PFIZER INC-K200901016

PATIENT
  Sex: Female
  Weight: 63 kg

DRUGS (4)
  1. LEVOXYL [Suspect]
     Dosage: 150 UG, 1X/DAY
     Route: 048
     Dates: start: 20100701, end: 20100801
  2. LEVOXYL [Suspect]
     Dosage: 150 UG, 1X/DAY
     Route: 048
     Dates: start: 20100801, end: 20110210
  3. LEVOXYL [Suspect]
     Dosage: 150 UG, 1X/DAY
     Route: 048
     Dates: start: 20100601, end: 20100701
  4. LEVOXYL [Suspect]
     Indication: HYPOTHYROIDISM
     Dosage: 150 UG, 1X/DAY
     Route: 048
     Dates: start: 20030101

REACTIONS (41)
  - MENOMETRORRHAGIA [None]
  - HYPERSENSITIVITY [None]
  - ASTHMA [None]
  - MEMORY IMPAIRMENT [None]
  - HYPERSOMNIA [None]
  - FEELING COLD [None]
  - MUSCULAR WEAKNESS [None]
  - DYSPEPSIA [None]
  - ALOPECIA [None]
  - MALAISE [None]
  - ANXIETY [None]
  - GENERAL PHYSICAL HEALTH DETERIORATION [None]
  - MUSCLE SPASMS [None]
  - AMNESIA [None]
  - ORAL DISCOMFORT [None]
  - HYPOTHYROIDISM [None]
  - ANAEMIA [None]
  - FLATULENCE [None]
  - DYSPNOEA [None]
  - PRURITUS [None]
  - CHEST DISCOMFORT [None]
  - OEDEMA PERIPHERAL [None]
  - JOINT SWELLING [None]
  - FATIGUE [None]
  - MYALGIA [None]
  - DRY EYE [None]
  - SWELLING [None]
  - NIGHTMARE [None]
  - CHOKING [None]
  - SWELLING FACE [None]
  - MUSCULOSKELETAL STIFFNESS [None]
  - PALLOR [None]
  - DYSPHONIA [None]
  - EYE SWELLING [None]
  - ASTHENIA [None]
  - DRUG INEFFECTIVE [None]
  - HYPERTHYROIDISM [None]
  - CHILLS [None]
  - CONSTIPATION [None]
  - DRY MOUTH [None]
  - WEIGHT INCREASED [None]
